FAERS Safety Report 25369137 (Version 1)
Quarter: 2025Q2

REPORT INFORMATION
  Report Type: Spontaneous
  Country: US (occurrence: None)
  Receive Date: 20250522
  Receipt Date: 20250522
  Transmission Date: 20250717
  Serious: No
  Sender: FDA-CTU
  Company Number: None

PATIENT
  Age: 77 Year
  Sex: Male

DRUGS (1)
  1. OJJAARA [Suspect]
     Active Substance: MOMELOTINIB DIHYDROCHLORIDE MONOHYDRATE

REACTIONS (4)
  - Pneumonia [None]
  - Platelet count decreased [None]
  - Craniofacial fracture [None]
  - Atrioventricular block [None]

NARRATIVE: CASE EVENT DATE: 20250521
